FAERS Safety Report 6503018-8 (Version None)
Quarter: 2009Q4

REPORT INFORMATION
  Report Type: 
  Country: None (occurrence: None)
  Receive Date: 20091201
  Receipt Date: 20090702
  Transmission Date: 20100525
  Serious: Yes (Other)
  Sender: FDA-Public Use
  Company Number: 197910USA

PATIENT
  Age: 27 Year
  Sex: Male
  Weight: 71.2 kg

DRUGS (2)
  1. AMOXICILLIN AND CLAVULANATE POTASSIUM [Suspect]
     Indication: ANIMAL BITE
     Dosage: 500/125 MG TID, ORAL
     Route: 048
     Dates: start: 20060926, end: 20061011
  2. AMOXICILLIN AND CLAVULANATE POTASSIUM [Suspect]
     Indication: CELLULITIS
     Dosage: 500/125 MG TID, ORAL
     Route: 048
     Dates: start: 20060926, end: 20061011

REACTIONS (28)
  - ABDOMINAL PAIN UPPER [None]
  - ANAL FISSURE [None]
  - ANAL HAEMORRHAGE [None]
  - ANORECTAL DISCOMFORT [None]
  - ANORECTAL DISORDER [None]
  - CLOSTRIDIUM DIFFICILE COLITIS [None]
  - CROHN'S DISEASE [None]
  - DEPRESSION [None]
  - DIARRHOEA [None]
  - DYSPEPSIA [None]
  - EYE INFECTION FUNGAL [None]
  - EYE INFLAMMATION [None]
  - FATIGUE [None]
  - FUNGAL TEST POSITIVE [None]
  - HAEMORRHOIDS [None]
  - INTESTINAL ULCER [None]
  - LETHARGY [None]
  - MALAISE [None]
  - MOUTH ULCERATION [None]
  - NAIL BED INFECTION FUNGAL [None]
  - PAINFUL DEFAECATION [None]
  - PAROPHTHALMIA [None]
  - PSEUDOMEMBRANOUS COLITIS [None]
  - PSORIASIS [None]
  - RASH [None]
  - SEXUAL DYSFUNCTION [None]
  - TRICHOSPORON INFECTION [None]
  - WEIGHT DECREASED [None]
